FAERS Safety Report 25543210 (Version 1)
Quarter: 2025Q3

REPORT INFORMATION
  Report Type: Spontaneous
  Country: EU (occurrence: EU)
  Receive Date: 20250711
  Receipt Date: 20250711
  Transmission Date: 20251021
  Serious: Yes (Death)
  Sender: TEVA
  Company Number: None

PATIENT
  Age: 17 Year
  Sex: Male
  Weight: 49 kg

DRUGS (7)
  1. METHOTREXATE [Suspect]
     Active Substance: METHOTREXATE
     Indication: Precursor T-lymphoblastic leukaemia acute
     Route: 042
     Dates: start: 20241125, end: 20241125
  2. DASATINIB [Suspect]
     Active Substance: DASATINIB
     Indication: Precursor T-lymphoblastic leukaemia acute
     Dosage: 70 MG FROM 12/17/2024
     Route: 048
     Dates: start: 20241210, end: 20241224
  3. ONCASPAR [Suspect]
     Active Substance: PEGASPARGASE
     Indication: Precursor T-lymphoblastic leukaemia acute
     Route: 042
     Dates: start: 20241129, end: 20241213
  4. CYTARABINE [Suspect]
     Active Substance: CYTARABINE
     Indication: Precursor T-lymphoblastic leukaemia acute
     Route: 037
     Dates: start: 20241125, end: 20241221
  5. DEPO-MEDROL [Suspect]
     Active Substance: METHYLPREDNISOLONE ACETATE
     Indication: Precursor T-lymphoblastic leukaemia acute
     Route: 037
     Dates: start: 20241125, end: 20241221
  6. CYTARABINE [Suspect]
     Active Substance: CYTARABINE
     Indication: Precursor T-lymphoblastic leukaemia acute
     Route: 042
     Dates: start: 20241210, end: 20241212
  7. METHOTREXATE [Suspect]
     Active Substance: METHOTREXATE
     Indication: Precursor T-lymphoblastic leukaemia acute
     Route: 037
     Dates: start: 20241125, end: 20241221

REACTIONS (1)
  - Brain oedema [Fatal]

NARRATIVE: CASE EVENT DATE: 20241226
